FAERS Safety Report 12924522 (Version 4)
Quarter: 2017Q2

REPORT INFORMATION
  Report Type: Report from Study
  Country: US (occurrence: US)
  Receive Date: 20161108
  Receipt Date: 20170420
  Transmission Date: 20170830
  Serious: Yes (Life-Threatening, Hospitalization, Other)
  Sender: FDA-Public Use
  Company Number: US-REGENERON PHARMACEUTICALS, INC.-2016-23396

PATIENT

DRUGS (4)
  1. METHOTREXATE (METHOTREXATE SODIUM) [Concomitant]
     Active Substance: METHOTREXATE SODIUM
     Indication: PRODUCT USED FOR UNKNOWN INDICATION
  2. ARCALYST [Suspect]
     Active Substance: RILONACEPT
     Indication: CRYOPYRIN ASSOCIATED PERIODIC SYNDROME
     Dosage: 220 MG MILLIGRAM(S), WEEKLY
     Route: 042
     Dates: start: 20160722, end: 20161020
  3. PREDNISONE. [Concomitant]
     Active Substance: PREDNISONE
     Indication: PRODUCT USED FOR UNKNOWN INDICATION
  4. IBUPROFEN. [Concomitant]
     Active Substance: IBUPROFEN
     Indication: PRODUCT USED FOR UNKNOWN INDICATION
     Dosage: UNK, AS NECESSARY

REACTIONS (5)
  - Off label use [Recovered/Resolved]
  - Escherichia sepsis [Recovered/Resolved]
  - Urosepsis [Recovered/Resolved]
  - Acute respiratory failure [Recovered/Resolved]
  - Periostitis [Not Recovered/Not Resolved]

NARRATIVE: CASE EVENT DATE: 201608
